FAERS Safety Report 26122538 (Version 1)
Quarter: 2025Q4

REPORT INFORMATION
  Report Type: Spontaneous
  Country: EU (occurrence: EU)
  Receive Date: 20251204
  Receipt Date: 20251204
  Transmission Date: 20260118
  Serious: Yes (Congenital Anomaly, Other)
  Sender: CIPLA
  Company Number: EU-AFSSAPS-NC2023001190

PATIENT

DRUGS (3)
  1. EMTRICITABINE\TENOFOVIR [Suspect]
     Active Substance: EMTRICITABINE\TENOFOVIR
     Dosage: UNK, TABLET
     Route: 064
     Dates: start: 2022, end: 2022
  2. DOVATO [Suspect]
     Active Substance: DOLUTEGRAVIR SODIUM\LAMIVUDINE
     Dosage: UNK
     Route: 064
     Dates: start: 2022, end: 20220805
  3. ISENTRESS [Suspect]
     Active Substance: RALTEGRAVIR POTASSIUM
     Dosage: UNK
     Route: 064
     Dates: start: 2022, end: 2022

REACTIONS (5)
  - Congenital genital malformation [Not Recovered/Not Resolved]
  - Virilism [Not Recovered/Not Resolved]
  - Hyperandrogenism [Not Recovered/Not Resolved]
  - Premature baby [Not Recovered/Not Resolved]
  - Foetal exposure during pregnancy [Unknown]

NARRATIVE: CASE EVENT DATE: 20220101
